FAERS Safety Report 4285077-9 (Version None)
Quarter: 2004Q1

REPORT INFORMATION
  Report Type: 
  Country: None (occurrence: None)
  Receive Date: 20040202
  Receipt Date: 20040122
  Transmission Date: 20041129
  Serious: Yes (Disabling, Other)
  Sender: FDA-Public Use
  Company Number: 2002-05-0105

PATIENT
  Age: 60 Year
  Sex: Male
  Weight: 68.0396 kg

DRUGS (5)
  1. PEG-INTRON [Suspect]
     Dosage: 96 MCG QWK SUBCUTANEOUS
     Route: 058
     Dates: start: 20020108, end: 20020418
  2. REBETOL [Suspect]
     Indication: HEPATITIS C
     Dosage: 1000 MG QD ORAL
     Route: 048
     Dates: start: 20010808, end: 20020401
  3. FLONASE [Concomitant]
  4. FLOVENT [Concomitant]
  5. SEREVENT [Concomitant]

REACTIONS (3)
  - BLINDNESS [None]
  - OPTIC NEURITIS [None]
  - VISUAL DISTURBANCE [None]
